FAERS Safety Report 13398556 (Version 4)
Quarter: 2018Q1

REPORT INFORMATION
  Report Type: Spontaneous
  Country: GB (occurrence: GB)
  Receive Date: 20170403
  Receipt Date: 20180321
  Transmission Date: 20180508
  Serious: Yes (Other)
  Sender: FDA-Public Use
  Company Number: GB-BAUSCH-BL-2017-008493

PATIENT
  Age: 30 Year
  Sex: Male

DRUGS (27)
  1. RAMIPRIL. [Suspect]
     Active Substance: RAMIPRIL
     Indication: HYPERTENSION
     Route: 065
  2. MESNA. [Suspect]
     Active Substance: MESNA
     Indication: PROPHYLAXIS
     Route: 065
  3. METOLAZONE. [Suspect]
     Active Substance: METOLAZONE
     Indication: HYPERTENSION
     Route: 050
  4. DOXAZOSIN [Suspect]
     Active Substance: DOXAZOSIN\DOXAZOSIN MESYLATE
     Route: 048
  5. GLYCERYL TRINITRATE [Suspect]
     Active Substance: NITROGLYCERIN
     Indication: HYPERTENSION
     Dosage: 250 MCG/MIN
     Route: 042
  6. MYCOPHENOLATE MOFETIL. [Suspect]
     Active Substance: MYCOPHENOLATE MOFETIL
     Indication: LUPUS NEPHRITIS
     Route: 065
  7. VALSARTAN. [Suspect]
     Active Substance: VALSARTAN
     Indication: HYPERTENSION
     Route: 065
  8. MYFORTIC [Concomitant]
     Active Substance: MYCOPHENOLATE SODIUM
     Indication: PRODUCT USED FOR UNKNOWN INDICATION
  9. PHENYTOIN. [Concomitant]
     Active Substance: PHENYTOIN
     Indication: PRODUCT USED FOR UNKNOWN INDICATION
  10. METOPROLOL TARTRATE. [Suspect]
     Active Substance: METOPROLOL TARTRATE
     Route: 042
  11. DOXAZOSIN [Suspect]
     Active Substance: DOXAZOSIN\DOXAZOSIN MESYLATE
     Indication: HYPERTENSION
     Route: 050
  12. WARFARIN [Concomitant]
     Active Substance: WARFARIN
     Indication: ANTICOAGULANT THERAPY
  13. CANDESARTAN CILEXETIL. [Suspect]
     Active Substance: CANDESARTAN CILEXETIL
     Indication: HYPERTENSION
     Route: 050
  14. CANDESARTAN CILEXETIL. [Suspect]
     Active Substance: CANDESARTAN CILEXETIL
     Route: 048
  15. ALISKIREN [Suspect]
     Active Substance: ALISKIREN
     Indication: HYPERTENSION
     Route: 065
  16. FUROSEMIDE. [Suspect]
     Active Substance: FUROSEMIDE
     Indication: HYPERTENSION
     Route: 065
  17. CYCLOPHOSPHAMIDE. [Concomitant]
     Active Substance: CYCLOPHOSPHAMIDE
     Indication: LUPUS NEPHRITIS
  18. RITUXIMAB. [Concomitant]
     Active Substance: RITUXIMAB
     Indication: PRODUCT USED FOR UNKNOWN INDICATION
  19. AZATHIOPRINE. [Concomitant]
     Active Substance: AZATHIOPRINE
     Indication: PRODUCT USED FOR UNKNOWN INDICATION
  20. FUROSEMIDE. [Suspect]
     Active Substance: FUROSEMIDE
     Route: 042
  21. NIFEDIPINE. [Suspect]
     Active Substance: NIFEDIPINE
     Indication: HYPERTENSION
     Route: 050
  22. METOPROLOL TARTRATE. [Suspect]
     Active Substance: METOPROLOL TARTRATE
     Indication: HYPERTENSION
     Route: 050
  23. METOLAZONE. [Suspect]
     Active Substance: METOLAZONE
     Route: 048
  24. MOXONIDINE [Suspect]
     Active Substance: MOXONIDINE
     Indication: HYPERTENSION
     Route: 065
  25. LABETALOL [Suspect]
     Active Substance: LABETALOL\LABETALOL HYDROCHLORIDE
     Indication: HYPERTENSION
     Dosage: 2 MG/MIN
     Route: 042
  26. FUROSEMIDE. [Suspect]
     Active Substance: FUROSEMIDE
     Route: 042
  27. PREDNISONE. [Concomitant]
     Active Substance: PREDNISONE
     Indication: SYSTEMIC LUPUS ERYTHEMATOSUS

REACTIONS (6)
  - Headache [Unknown]
  - Anaphylactoid reaction [Unknown]
  - Drug intolerance [Unknown]
  - Hyperkalaemia [Unknown]
  - Therapeutic response decreased [Unknown]
  - Gastrointestinal disorder [Unknown]
